FAERS Safety Report 12577539 (Version 4)
Quarter: 2017Q1

REPORT INFORMATION
  Report Type: Report from Study
  Country: US (occurrence: US)
  Receive Date: 20160720
  Receipt Date: 20170203
  Transmission Date: 20170428
  Serious: Yes (Death, Hospitalization, Other)
  Sender: FDA-Public Use
  Company Number: US-TAKEDA-2016MPI006172

PATIENT
  Age: 52 Year
  Sex: Male
  Weight: 82.9 kg

DRUGS (51)
  1. ZOVIRAX [Concomitant]
     Active Substance: ACYCLOVIR
     Dosage: 200 MG, BID
     Route: 048
  2. ZOVIRAX [Concomitant]
     Active Substance: ACYCLOVIR
     Dosage: 400 MG, BID
     Route: 048
  3. ZOFRAN [Concomitant]
     Active Substance: ONDANSETRON HYDROCHLORIDE
     Dosage: 8 MG, UNK
     Route: 042
  4. ALTEPLASE [Concomitant]
     Active Substance: ALTEPLASE
     Dosage: 2 MG, UNK
     Route: 065
  5. DECITABINE. [Suspect]
     Active Substance: DECITABINE
     Indication: ACUTE MYELOID LEUKAEMIA
     Dosage: 40.1 MG, UNK
     Route: 042
     Dates: start: 20160603, end: 20160612
  6. MIRALAX [Concomitant]
     Active Substance: POLYETHYLENE GLYCOL 3350
     Indication: CONSTIPATION
     Dosage: 17 G, QD
     Route: 048
  7. NEURONTIN [Concomitant]
     Active Substance: GABAPENTIN
     Indication: NEUROPATHY PERIPHERAL
     Dosage: 300 MG, TID
     Route: 048
  8. NEURONTIN [Concomitant]
     Active Substance: GABAPENTIN
     Dosage: 1200 MG, TID
     Route: 048
  9. NEURONTIN [Concomitant]
     Active Substance: GABAPENTIN
     Dosage: 600 MG, TID
     Route: 048
  10. CALCIUM CARBONATE. [Concomitant]
     Active Substance: CALCIUM CARBONATE
     Dosage: 1000 MG, Q6HR
     Route: 065
  11. VITAMIN D3 [Concomitant]
     Active Substance: CHOLECALCIFEROL
     Dosage: UNK, QD
     Route: 048
  12. REMERON [Concomitant]
     Active Substance: MIRTAZAPINE
     Dosage: 7.5 MG, UNK
     Route: 048
  13. MS CONTIN [Concomitant]
     Active Substance: MORPHINE SULFATE
     Dosage: 15 MG, UNK
  14. VENETOCLAX [Concomitant]
     Active Substance: VENETOCLAX
     Dosage: 200 MG, UNK
     Route: 048
     Dates: start: 20160729
  15. ACETAMINOPHEN. [Concomitant]
     Active Substance: ACETAMINOPHEN
     Dosage: 650 MG, Q4HR
     Route: 065
  16. ALBUTEROL                          /00139501/ [Concomitant]
     Active Substance: ALBUTEROL
     Dosage: 2.5 MG, UNK
  17. HEPARIN [Concomitant]
     Active Substance: HEPARIN SODIUM
     Dosage: 3 ML, UNK
     Route: 065
  18. FIORTAL [Concomitant]
     Indication: HEADACHE
     Route: 048
  19. VELCADE [Suspect]
     Active Substance: BORTEZOMIB
     Indication: ACUTE MYELOID LEUKAEMIA
     Dosage: 2.6 MG, UNK
     Route: 058
     Dates: start: 20160603, end: 20160613
  20. DOXORUBICIN [Suspect]
     Active Substance: DOXORUBICIN
     Indication: ACUTE MYELOID LEUKAEMIA
     Dosage: 80 MG, UNK
     Route: 042
     Dates: start: 20160606, end: 20160606
  21. FIORICET [Concomitant]
     Active Substance: ACETAMINOPHEN\BUTALBITAL\CAFFEINE
     Indication: HEADACHE
     Dosage: UNK
     Route: 048
  22. NOXAFIL [Concomitant]
     Active Substance: POSACONAZOLE
     Dosage: 100 MG, QD
     Route: 048
  23. VENETOCLAX [Concomitant]
     Active Substance: VENETOCLAX
     Dosage: 400 MG, UNK
     Route: 048
     Dates: start: 20160730
  24. EFFEXOR [Concomitant]
     Active Substance: VENLAFAXINE HYDROCHLORIDE
     Dosage: 150 MG, QD
     Route: 048
  25. ONDANSETRON [Concomitant]
     Active Substance: ONDANSETRON
     Dosage: 4 MG, UNK
     Route: 065
  26. ZOFRAN [Concomitant]
     Active Substance: ONDANSETRON HYDROCHLORIDE
     Dosage: 4 MG, UNK
     Route: 048
  27. OXYCONTIN [Concomitant]
     Active Substance: OXYCODONE HYDROCHLORIDE
     Indication: PAIN
     Dosage: 10 MG, UNK
     Route: 048
  28. DIPHENHYDRAMINE. [Concomitant]
     Active Substance: DIPHENHYDRAMINE
     Dosage: UNK
     Route: 065
  29. EPINEPHRINE. [Concomitant]
     Active Substance: EPINEPHRINE
     Dosage: 0.3 MG, UNK
     Route: 065
  30. FAMOTIDINE. [Concomitant]
     Active Substance: FAMOTIDINE
     Dosage: 20 MG, UNK
     Route: 065
  31. PROCHLORPERAZINE. [Concomitant]
     Active Substance: PROCHLORPERAZINE
     Dosage: 10 MG, Q6HR
     Route: 065
  32. LEVAQUIN [Concomitant]
     Active Substance: LEVOFLOXACIN
     Dosage: 500 MG, QD
     Route: 048
  33. ZYLOPRIM [Concomitant]
     Active Substance: ALLOPURINOL
     Dosage: 300 MG, QD
     Route: 048
  34. DACOGEN [Concomitant]
     Active Substance: DECITABINE
     Dosage: 38 MG, UNK
     Route: 042
  35. BEN-GAY ARTHRITIS [Concomitant]
     Dosage: UNK, TID
     Route: 061
  36. VENETOCLAX [Concomitant]
     Active Substance: VENETOCLAX
     Dosage: 800 MG, QD
     Route: 048
     Dates: start: 20160731
  37. BUTALBITAL, ACETAMINOPHEN, AND CAFFEINE [Concomitant]
     Active Substance: ACETAMINOPHEN\BUTALBITAL\CAFFEINE
     Dosage: UNK
     Route: 065
  38. FLAGYL [Concomitant]
     Active Substance: METRONIDAZOLE\METRONIDAZOLE HYDROCHLORIDE
     Dosage: 500 MG, TID
     Route: 048
  39. MEGACE [Concomitant]
     Active Substance: MEGESTROL ACETATE
     Dosage: 20 MG, BID
     Route: 048
  40. RITALIN [Concomitant]
     Active Substance: METHYLPHENIDATE HYDROCHLORIDE
     Dosage: 10 MG, BID
     Route: 048
  41. MYCAMINE [Concomitant]
     Active Substance: MICAFUNGIN SODIUM
     Dosage: 50 MG, QD
     Route: 042
  42. SODIUM CHLORIDE. [Concomitant]
     Active Substance: SODIUM CHLORIDE
     Dosage: UNK
     Route: 065
  43. METHYLPREDNISOLONE. [Concomitant]
     Active Substance: METHYLPREDNISOLONE
     Dosage: 125 MG, UNK
     Route: 065
  44. OXYCODONE                          /00045603/ [Concomitant]
     Active Substance: OXYCODONE
     Dosage: UNK UNK, Q3HR
     Route: 065
  45. OXYCODONE                          /00045603/ [Concomitant]
     Active Substance: OXYCODONE
     Dosage: 10 MG, UNK
     Route: 048
  46. CLONAZEPAM. [Concomitant]
     Active Substance: CLONAZEPAM
     Dosage: 0.5 MG, UNK
     Route: 065
  47. COLACE [Concomitant]
     Active Substance: DOCUSATE SODIUM
     Dosage: 100 MG, BID
     Route: 048
  48. MS CONTIN [Concomitant]
     Active Substance: MORPHINE SULFATE
     Dosage: 30 MG, UNK
     Route: 048
  49. LORAZEPAM. [Concomitant]
     Active Substance: LORAZEPAM
     Dosage: UNK, Q4HR
     Route: 065
  50. MORPHINE SULFATE. [Concomitant]
     Active Substance: MORPHINE SULFATE
     Dosage: 15 MG, UNK
     Route: 065
  51. TYLENOL [Concomitant]
     Active Substance: ACETAMINOPHEN
     Dosage: 650 MG, Q4HR
     Route: 048

REACTIONS (8)
  - Neuralgia [Not Recovered/Not Resolved]
  - Presyncope [Recovered/Resolved]
  - Fatigue [Recovered/Resolved with Sequelae]
  - Peripheral sensory neuropathy [Not Recovered/Not Resolved]
  - Sepsis [Fatal]
  - Muscular weakness [Not Recovered/Not Resolved]
  - Acute myeloid leukaemia [Fatal]
  - Decreased appetite [Not Recovered/Not Resolved]

NARRATIVE: CASE EVENT DATE: 20160630
